FAERS Safety Report 6257462-7 (Version None)
Quarter: 2009Q2

REPORT INFORMATION
  Report Type: 
  Country: None (occurrence: None)
  Receive Date: 20090630
  Receipt Date: 20090630
  Transmission Date: 20091009
  Serious: Yes (Death, Hospitalization)
  Sender: FDA-Public Use
  Company Number: None

PATIENT
  Age: 68 Year
  Sex: Male
  Weight: 113.3993 kg

DRUGS (1)
  1. BYETTA [Suspect]
     Indication: TYPE 2 DIABETES MELLITUS
     Dosage: TWICE DAILY SQ AT LEAST ONE YEAR
     Route: 058

REACTIONS (4)
  - DIALYSIS [None]
  - PANCREATITIS HAEMORRHAGIC [None]
  - RENAL FAILURE ACUTE [None]
  - SHOCK [None]
